FAERS Safety Report 13747671 (Version 1)
Quarter: 2017Q3

REPORT INFORMATION
  Report Type: Report from Study
  Country: None (occurrence: BE)
  Receive Date: 20170712
  Receipt Date: 20170712
  Transmission Date: 20171127
  Serious: Yes (Hospitalization)
  Sender: FDA-Public Use
  Company Number: BE-ABBVIE-17P-013-2032850-00

PATIENT
  Sex: Male

DRUGS (13)
  1. PROLOPA 250 [Concomitant]
     Indication: PRODUCT USED FOR UNKNOWN INDICATION
     Dosage: FORM STRENGTH: 200MG/50MG, PRIOR TO DUODOPA
  2. CYMBALTA [Concomitant]
     Active Substance: DULOXETINE HYDROCHLORIDE
     Indication: PRODUCT USED FOR UNKNOWN INDICATION
  3. DUODOPA [Suspect]
     Active Substance: CARBIDOPA\LEVODOPA
     Indication: PARKINSON^S DISEASE
     Dosage: MD: 10 ML??CD: 4.2 ML/HR DURING 16 HRS??EDA: 3 ML
     Route: 050
     Dates: start: 20161031
  4. Q10 [Concomitant]
     Indication: PRODUCT USED FOR UNKNOWN INDICATION
  5. VITAMIN B12 [Concomitant]
     Active Substance: CYANOCOBALAMIN
     Indication: PRODUCT USED FOR UNKNOWN INDICATION
  6. PROLOPA 125 [Concomitant]
     Indication: PRODUCT USED FOR UNKNOWN INDICATION
     Dosage: FORM STRENGTH: 100MG/25MG; PRIOR TO DUODOPA
  7. XANAX [Concomitant]
     Active Substance: ALPRAZOLAM
     Indication: PRODUCT USED FOR UNKNOWN INDICATION
     Dosage: IF NEEDED BUT MAXIMUM 4 TIMES PER DAY
  8. PROLOPA 250 [Concomitant]
     Dosage: FORM STRENGTH: 200MG/50MG, AS RESCUE MEDICATION, EVERY 2 HOURS
  9. CHOLIXX [Concomitant]
     Indication: PRODUCT USED FOR UNKNOWN INDICATION
  10. DUODOPA [Suspect]
     Active Substance: CARBIDOPA\LEVODOPA
     Dosage: MD: 6 ML??CD: 3.2 ML/HR DURING 16 HRS??EDA: 3 ML
     Route: 050
     Dates: start: 20170515
  11. PROLOPA 125 [Concomitant]
     Dosage: FORM STRENGTH: 100MG/25MG; AS RESCUE MEDICATION, 4 TIMES PER DAY
     Route: 048
  12. DUODOPA [Suspect]
     Active Substance: CARBIDOPA\LEVODOPA
     Dosage: DOSES CONTINUOUSLY MONITORED AND ADAPTED
     Route: 050
     Dates: end: 20170515
  13. XANAX [Concomitant]
     Active Substance: ALPRAZOLAM
     Indication: PRODUCT USED FOR UNKNOWN INDICATION

REACTIONS (3)
  - Hypokinesia [Unknown]
  - Fall [Recovered/Resolved]
  - Dysstasia [Unknown]
